FAERS Safety Report 6887858-1 (Version None)
Quarter: 2010Q3

REPORT INFORMATION
  Report Type: 
  Country: None (occurrence: None)
  Receive Date: 20100708
  Receipt Date: 20100406
  Transmission Date: 20110219
  Serious: Yes (Other)
  Sender: FDA-Public Use
  Company Number: 2010025222

PATIENT
  Age: 35 Year
  Sex: Female
  Weight: 55.1 kg

DRUGS (2)
  1. CHANTIX [Suspect]
     Indication: SMOKING CESSATION THERAPY
     Dosage: 0.5 MG, 1X/DAY, ORAL  1MG, ORAL
     Route: 048
     Dates: start: 20100218, end: 20100201
  2. CHANTIX [Suspect]
     Indication: SMOKING CESSATION THERAPY
     Dosage: 0.5 MG, 1X/DAY, ORAL  1MG, ORAL
     Route: 048
     Dates: start: 20100201, end: 20100223

REACTIONS (8)
  - ABNORMAL DREAMS [None]
  - APATHY [None]
  - DRY MOUTH [None]
  - DYSGEUSIA [None]
  - FATIGUE [None]
  - IRRITABILITY [None]
  - POOR QUALITY SLEEP [None]
  - VISION BLURRED [None]
